FAERS Safety Report 9643161 (Version 2)
Quarter: 2014Q1

REPORT INFORMATION
  Report Type: Report from Study
  Country: CA (occurrence: CA)
  Receive Date: 20131024
  Receipt Date: 20140101
  Transmission Date: 20141002
  Serious: Yes (Other)
  Sender: FDA-Public Use
  Company Number: PHHY2013CA120195

PATIENT
  Sex: Male

DRUGS (3)
  1. CLOZARIL [Suspect]
     Indication: SCHIZOPHRENIA
     Dosage: 500 MG, QD
     Route: 048
     Dates: start: 20121210
  2. INVEGA SUSTENNA [Concomitant]
     Dosage: EVERY 28 DAYS
     Route: 030
  3. LIPIDIL MICRO [Concomitant]
     Dosage: 200 MG, UNK

REACTIONS (1)
  - General physical health deterioration [Unknown]
